FAERS Safety Report 11220854 (Version 1)
Quarter: 2015Q2

REPORT INFORMATION
  Report Type: Spontaneous
  Country: US (occurrence: None)
  Receive Date: 20150625
  Receipt Date: 20150625
  Transmission Date: 20150821
  Serious: Yes (Hospitalization)
  Sender: FDA-Public Use
  Company Number: None

PATIENT
  Age: 65 Year
  Sex: Female
  Weight: 46.72 kg

DRUGS (7)
  1. OXYCODONE [Concomitant]
     Active Substance: OXYCODONE
  2. PREDNISONE. [Concomitant]
     Active Substance: PREDNISONE
  3. ACYCLOVIR. [Concomitant]
     Active Substance: ACYCLOVIR
  4. ESOMAPRAZOLE [Concomitant]
  5. ACETAMINOPHEN. [Concomitant]
     Active Substance: ACETAMINOPHEN
  6. GABAPENTIN. [Concomitant]
     Active Substance: GABAPENTIN
  7. ABRAXANE [Suspect]
     Active Substance: PACLITAXEL
     Indication: HODGKIN^S DISEASE
     Dosage: 150 MG/M2 IV SYA 1,8,15
     Route: 042
     Dates: start: 20150413, end: 20150525

REACTIONS (3)
  - Cerebral infarction [None]
  - Asthenia [None]
  - White blood cell count increased [None]

NARRATIVE: CASE EVENT DATE: 20150618
